FAERS Safety Report 4477027-7 (Version None)
Quarter: 2004Q4

REPORT INFORMATION
  Report Type: 
  Country: None (occurrence: None)
  Receive Date: 20041018
  Receipt Date: 20040325
  Transmission Date: 20050328
  Serious: Yes (Death, Life-Threatening, Disabling)
  Sender: FDA-Public Use
  Company Number: 200411039JP

PATIENT
  Age: 63 Year
  Sex: Female
  Weight: 38 kg

DRUGS (9)
  1. ARAVA [Suspect]
     Indication: RHEUMATOID ARTHRITIS
     Route: 048
     Dates: start: 20040203, end: 20040324
  2. PREDONINE [Concomitant]
     Indication: RHEUMATOID ARTHRITIS
     Route: 048
     Dates: start: 20040106, end: 20040325
  3. HYPEN [Concomitant]
     Indication: RHEUMATOID ARTHRITIS
     Route: 048
     Dates: start: 20040106, end: 20040325
  4. MARZULENE S [Concomitant]
     Indication: GASTRITIS
     Route: 048
     Dates: start: 20040106, end: 20040225
  5. MARZULENE S [Concomitant]
     Indication: PROPHYLAXIS
     Route: 048
     Dates: start: 20040106, end: 20040225
  6. RIMATIL [Concomitant]
     Indication: RHEUMATOID ARTHRITIS
     Route: 048
     Dates: start: 20040106, end: 20040325
  7. VOLTAREN SUPPOSITORIEN [Concomitant]
     Indication: RHEUMATOID ARTHRITIS
     Route: 054
     Dates: start: 20040106, end: 20040325
  8. HALCION [Concomitant]
     Indication: INSOMNIA
     Route: 048
     Dates: start: 20040106, end: 20040325
  9. FOSAMAC TABLETS [Concomitant]
     Indication: OSTEOPOROSIS
     Route: 048
     Dates: start: 20040106, end: 20040325

REACTIONS (28)
  - ALANINE AMINOTRANSFERASE INCREASED [None]
  - ANAEMIA [None]
  - ASPARTATE AMINOTRANSFERASE INCREASED [None]
  - ASPERGILLOSIS [None]
  - BLOOD ALBUMIN DECREASED [None]
  - BLOOD ALKALINE PHOSPHATASE INCREASED [None]
  - BLOOD LACTATE DEHYDROGENASE INCREASED [None]
  - BLOOD UREA INCREASED [None]
  - C-REACTIVE PROTEIN INCREASED [None]
  - CANDIDIASIS [None]
  - CHLAMYDIA SEROLOGY POSITIVE [None]
  - CONDITION AGGRAVATED [None]
  - CORYNEBACTERIUM INFECTION [None]
  - DIABETES MELLITUS [None]
  - DISSEMINATED INTRAVASCULAR COAGULATION [None]
  - GAMMA-GLUTAMYLTRANSFERASE INCREASED [None]
  - HEPATIC FUNCTION ABNORMAL [None]
  - INFECTION [None]
  - INTERSTITIAL LUNG DISEASE [None]
  - LEGIONELLA SEROLOGY POSITIVE [None]
  - LYMPHOCYTE STIMULATION TEST POSITIVE [None]
  - METABOLIC ACIDOSIS [None]
  - PNEUMOCYSTIS CARINII PNEUMONIA [None]
  - PNEUMOTHORAX [None]
  - RESPIRATORY FAILURE [None]
  - SPUTUM CULTURE POSITIVE [None]
  - STAPHYLOCOCCAL INFECTION [None]
  - THERAPY NON-RESPONDER [None]
